FAERS Safety Report 6025769-4 (Version None)
Quarter: 2008Q4

REPORT INFORMATION
  Report Type: 
  Country: None (occurrence: None)
  Receive Date: 20081224
  Receipt Date: 20081208
  Transmission Date: 20090506
  Serious: Yes (Other)
  Sender: FDA-Public Use
  Company Number: 2008S1011828

PATIENT
  Age: 26 Year
  Sex: Female
  Weight: 83.0083 kg

DRUGS (6)
  1. AMNESTEEM [Suspect]
     Dosage: 40 MG; TWICE A DAY; ORAL
     Route: 048
     Dates: start: 20080428, end: 20080617
  2. ORAL CONTRACEPTIVES NOS [Concomitant]
  3. ALBUTEROL [Concomitant]
  4. ZOLPIDEM [Concomitant]
  5. FLAGYL [Concomitant]
  6. DIFLUCAN [Concomitant]

REACTIONS (9)
  - ALOPECIA [None]
  - DRUG EXPOSURE DURING PREGNANCY [None]
  - DYSPNOEA [None]
  - INSOMNIA [None]
  - PREGNANCY [None]
  - TREATMENT NONCOMPLIANCE [None]
  - VAGINITIS BACTERIAL [None]
  - VOCAL CORD DISORDER [None]
  - VULVOVAGINAL CANDIDIASIS [None]
